FAERS Safety Report 8565073-3 (Version None)
Quarter: 2012Q3

REPORT INFORMATION
  Report Type: 
  Country: None (occurrence: None)
  Receive Date: 20120803
  Receipt Date: 20120719
  Transmission Date: 20120928
  Serious: No
  Sender: FDA-Public Use
  Company Number: US-009507513-1206USA03496

PATIENT

DRUGS (5)
  1. PRILOSEC [Concomitant]
  2. POTASSIUM CHLORIDE [Concomitant]
  3. ZETIA [Suspect]
     Indication: BLOOD CHOLESTEROL
     Dosage: 10 MG, QD
     Route: 048
     Dates: start: 20120608, end: 20120618
  4. BENECOL [Concomitant]
  5. AMLODIPINE [Concomitant]

REACTIONS (3)
  - BACK PAIN [None]
  - PAIN IN EXTREMITY [None]
  - TENDERNESS [None]
